FAERS Safety Report 12786258 (Version 1)
Quarter: 2016Q3

REPORT INFORMATION
  Report Type: Report from Study
  Country: NZ (occurrence: NZ)
  Receive Date: 20160927
  Receipt Date: 20160927
  Transmission Date: 20161109
  Serious: Yes (Other)
  Sender: FDA-Public Use
  Company Number: NZ-ABBVIE-16K-118-1735686-00

PATIENT
  Age: 43 Year
  Sex: Male

DRUGS (1)
  1. HUMIRA [Suspect]
     Active Substance: ADALIMUMAB
     Indication: ANKYLOSING SPONDYLITIS
     Route: 058
     Dates: end: 201605

REACTIONS (18)
  - Hypersensitivity vasculitis [Not Recovered/Not Resolved]
  - Abdominal distension [Recovering/Resolving]
  - Wound infection staphylococcal [Recovered/Resolved]
  - Rash macular [Unknown]
  - Arthralgia [Not Recovered/Not Resolved]
  - Abdominal pain upper [Recovering/Resolving]
  - Ankylosing spondylitis [Unknown]
  - Rash papular [Unknown]
  - Streptococcal infection [Recovered/Resolved]
  - Back pain [Not Recovered/Not Resolved]
  - Skin haemorrhage [Recovered/Resolved]
  - Impaired healing [Recovered/Resolved]
  - Gangrene [Recovered/Resolved]
  - Feeling abnormal [Not Recovered/Not Resolved]
  - Rash pruritic [Unknown]
  - Flatulence [Recovering/Resolving]
  - Ankylosing spondylitis [Recovered/Resolved]
  - Purpura [Recovered/Resolved]

NARRATIVE: CASE EVENT DATE: 2016
